FAERS Safety Report 4567278-5 (Version None)
Quarter: 2005Q1

REPORT INFORMATION
  Report Type: 
  Country: None (occurrence: None)
  Receive Date: 20050127
  Receipt Date: 20050117
  Transmission Date: 20050727
  Serious: Yes (Other)
  Sender: FDA-Public Use
  Company Number: HQWYE474915APR04

PATIENT
  Age: 32 Year
  Sex: Female

DRUGS (3)
  1. EFFEXOR XR [Suspect]
     Dosage: 75 MG 1X PER 1 DAY, ORAL
     Route: 048
     Dates: end: 20040401
  2. EFFEXOR XR [Suspect]
     Dosage: ORAL
     Route: 048
  3. WELLBUTRIN XL (BUPROPION HYDROCHLORIDE) [Concomitant]

REACTIONS (5)
  - ABORTION SPONTANEOUS [None]
  - ANXIETY [None]
  - DRUG EXPOSURE DURING PREGNANCY [None]
  - INTENTIONAL MISUSE [None]
  - TREATMENT NONCOMPLIANCE [None]
